FAERS Safety Report 23049657 (Version 2)
Quarter: 2023Q4

REPORT INFORMATION
  Report Type: Spontaneous
  Country: CA (occurrence: CA)
  Receive Date: 20231010
  Receipt Date: 20231213
  Transmission Date: 20240110
  Serious: Yes (Other)
  Sender: FDA-Public Use
  Company Number: CA-PFIZER INC-202101301562

PATIENT
  Age: 9 Year
  Sex: Female
  Weight: 34.2 kg

DRUGS (3)
  1. GENOTROPIN [Suspect]
     Active Substance: SOMATROPIN
     Indication: Short stature
     Dosage: 800 UG, 6 TIMES A WEEK
     Route: 058
     Dates: start: 20201207
  2. GENOTROPIN [Suspect]
     Active Substance: SOMATROPIN
     Dosage: 1 DF, 6 TIMES A WEEK, 1, 2 MG
     Route: 058
     Dates: start: 202305, end: 2023
  3. GENOTROPIN [Suspect]
     Active Substance: SOMATROPIN
     Dosage: 1 DF, 6 TIMES A WEEK, 1, 8 MG
     Route: 058
     Dates: start: 2023

REACTIONS (7)
  - Pneumonia [Unknown]
  - Developmental delay [Unknown]
  - Learning disability [Unknown]
  - Abdominal pain [Unknown]
  - Lactose intolerance [Unknown]
  - Blood 25-hydroxycholecalciferol decreased [Unknown]
  - Blood 25-hydroxycholecalciferol decreased [Not Recovered/Not Resolved]

NARRATIVE: CASE EVENT DATE: 20210504
